FAERS Safety Report 24328875 (Version 1)
Quarter: 2024Q3

REPORT INFORMATION
  Report Type: Spontaneous
  Country: US (occurrence: US)
  Receive Date: 20240917
  Receipt Date: 20240917
  Transmission Date: 20241017
  Serious: Yes (Other)
  Sender: JOHNSON AND JOHNSON
  Company Number: US-JNJFOC-20240922881

PATIENT
  Age: 11 Year
  Sex: Male
  Weight: 52 kg

DRUGS (7)
  1. RISPERDAL [Suspect]
     Active Substance: RISPERIDONE
     Indication: Product used for unknown indication
     Route: 065
  2. BENZTROPINE [Suspect]
     Active Substance: BENZTROPINE
     Route: 065
  3. QUETIAPINE [Suspect]
     Active Substance: QUETIAPINE
     Route: 065
  4. THIAMINE [Suspect]
     Active Substance: THIAMINE
     Route: 065
  5. SIMVASTATIN [Suspect]
     Active Substance: SIMVASTATIN
     Route: 065
  6. OMEPRAZOLE [Suspect]
     Active Substance: OMEPRAZOLE
     Route: 065
  7. FOLIC ACID [Suspect]
     Active Substance: FOLIC ACID
     Route: 065

REACTIONS (6)
  - Drug abuse [Unknown]
  - Sinus tachycardia [Unknown]
  - Mucosal dryness [Unknown]
  - Anhidrosis [Unknown]
  - Agitation [Recovered/Resolved with Sequelae]
  - Confusional state [Recovered/Resolved with Sequelae]
